FAERS Safety Report 8797493 (Version 3)
Quarter: 2013Q2

REPORT INFORMATION
  Report Type: Report from Study
  Country: US (occurrence: US)
  Receive Date: 20120919
  Receipt Date: 20130522
  Transmission Date: 20140414
  Serious: Yes (Death)
  Sender: FDA-Public Use
  Company Number: US-ROCHE-1124455

PATIENT
  Sex: Female

DRUGS (2)
  1. AVASTIN [Suspect]
     Indication: OVARIAN CANCER
     Route: 042
     Dates: start: 20100510, end: 20100823
  2. AVASTIN [Suspect]
     Indication: MALIGNANT PERITONEAL NEOPLASM

REACTIONS (2)
  - Disease progression [Fatal]
  - Fatigue [Unknown]
